FAERS Safety Report 12429909 (Version 1)
Quarter: 2016Q2

REPORT INFORMATION
  Report Type: Spontaneous
  Country: US (occurrence: US)
  Receive Date: 20160602
  Receipt Date: 20160602
  Transmission Date: 20160815
  Serious: Yes (Hospitalization, Other)
  Sender: FDA-Public Use
  Company Number: US-KADMON PHARMACEUTICALS, LLC-KAD201503-000598

PATIENT
  Age: 67 Year
  Sex: Male
  Weight: 76.6 kg

DRUGS (7)
  1. PRIMADOL [Concomitant]
  2. PANTROPRAZOLE [Concomitant]
  3. RIBASPHERE [Suspect]
     Active Substance: RIBAVIRIN
     Indication: HEPATITIS C
     Dosage: CAPSULES; 1200 MG DAILY (3 X 200 MG CAPSULES AM AND 3 X 200 MG CAPSULES IN PM)
     Route: 048
     Dates: start: 20150310, end: 20150320
  4. LEVOTHYROXINE. [Concomitant]
     Active Substance: LEVOTHYROXINE
  5. PROPRANOLOL HCL [Concomitant]
     Active Substance: PROPRANOLOL HYDROCHLORIDE
     Indication: VARICES OESOPHAGEAL
  6. GABAPENTIN. [Concomitant]
     Active Substance: GABAPENTIN
  7. VIEKIRA PAK [Suspect]
     Active Substance: DASABUVIR\OMBITASVIR\PARITAPREVIR\RITONAVIR
     Dosage: TWO OMBITASVIR, PARITAPREVIR, RITONAVIR 12.5/75/50 MG TABLETS ONCE DAILY AM
     Dates: start: 20150310, end: 20150320

REACTIONS (15)
  - Pancreatitis [Recovered/Resolved]
  - Constipation [Recovered/Resolved]
  - Gait disturbance [Recovering/Resolving]
  - Fatigue [Not Recovered/Not Resolved]
  - Depression [Recovering/Resolving]
  - Nervous system disorder [Not Recovered/Not Resolved]
  - Formication [Recovered/Resolved]
  - Weight decreased [Not Recovered/Not Resolved]
  - Headache [Recovered/Resolved]
  - Eye pain [Recovering/Resolving]
  - Agitation [Not Recovered/Not Resolved]
  - Insomnia [Recovered/Resolved]
  - Tremor [Not Recovered/Not Resolved]
  - Photophobia [Recovered/Resolved]
  - Asthenia [Recovered/Resolved]

NARRATIVE: CASE EVENT DATE: 20150310
